FAERS Safety Report 14852032 (Version 1)
Quarter: 2018Q2

REPORT INFORMATION
  Report Type: Spontaneous
  Country: US (occurrence: US)
  Receive Date: 20180507
  Receipt Date: 20180507
  Transmission Date: 20180711
  Serious: Yes (Death, Other)
  Sender: FDA-Public Use
  Company Number: PHHY2018US072893

PATIENT
  Age: 77 Year
  Sex: Male

DRUGS (4)
  1. AZITHROMYCIN ANHYDROUS. [Concomitant]
     Active Substance: AZITHROMYCIN ANHYDROUS
     Indication: PRODUCT USED FOR UNKNOWN INDICATION
     Dosage: UNK
     Route: 065
  2. LEVOFLOXACIN. [Concomitant]
     Active Substance: LEVOFLOXACIN
     Indication: PRODUCT USED FOR UNKNOWN INDICATION
     Dosage: UNK
     Route: 065
  3. RIFAMPICIN [Concomitant]
     Active Substance: RIFAMPIN
     Indication: PRODUCT USED FOR UNKNOWN INDICATION
     Dosage: UNK
     Route: 065
  4. IMATINIB [Suspect]
     Active Substance: IMATINIB
     Indication: HYPEREOSINOPHILIC SYNDROME
     Dosage: UNK
     Route: 065

REACTIONS (11)
  - Cytokine storm [Fatal]
  - Restlessness [Fatal]
  - Acute respiratory failure [Fatal]
  - Agitation [Fatal]
  - Distributive shock [Fatal]
  - General physical health deterioration [Fatal]
  - Metabolic acidosis [Fatal]
  - Hypothermia [Fatal]
  - Dyspnoea [Fatal]
  - Urinary retention [Fatal]
  - Cardiac arrest [Unknown]
